FAERS Safety Report 9928275 (Version 2)
Quarter: 2014Q1

REPORT INFORMATION
  Report Type: Spontaneous
  Country: US (occurrence: US)
  Receive Date: 20140227
  Receipt Date: 20140306
  Transmission Date: 20141002
  Serious: Yes (Hospitalization)
  Sender: FDA-Public Use
  Company Number: US-AMGEN-USASP2014012739

PATIENT
  Age: 74 Year
  Sex: Female

DRUGS (1)
  1. PROLIA [Suspect]
     Indication: PRODUCT USED FOR UNKNOWN INDICATION
     Route: 065

REACTIONS (5)
  - Spinal pain [Unknown]
  - Fibromyalgia [Recovering/Resolving]
  - Hypoaesthesia [Recovering/Resolving]
  - Blood calcium abnormal [Recovering/Resolving]
  - Paraesthesia [Recovering/Resolving]
